FAERS Safety Report 13842820 (Version 2)
Quarter: 2017Q4

REPORT INFORMATION
  Report Type: Report from Study
  Country: US (occurrence: US)
  Receive Date: 20170808
  Receipt Date: 20171122
  Transmission Date: 20180320
  Serious: No
  Sender: FDA-Public Use
  Company Number: PHEH2017US024736

PATIENT
  Sex: Female

DRUGS (2)
  1. OMNITROPE [Suspect]
     Active Substance: SOMATROPIN
     Indication: DWARFISM
     Dosage: 2.4 MG, X 6 DAYS A WEEK
     Route: 058
     Dates: start: 201202
  2. MULTI VITAMIN [Concomitant]
     Active Substance: VITAMINS
     Indication: PRODUCT USED FOR UNKNOWN INDICATION
     Dosage: UNK UNK, PRN
     Route: 065

REACTIONS (3)
  - Device malfunction [Not Recovered/Not Resolved]
  - Expired device used [Unknown]
  - Incorrect dose administered by device [Not Recovered/Not Resolved]
